FAERS Safety Report 18437270 (Version 2)
Quarter: 2021Q1

REPORT INFORMATION
  Report Type: Spontaneous
  Country: US (occurrence: US)
  Receive Date: 20201028
  Receipt Date: 20210212
  Transmission Date: 20210419
  Serious: No
  Sender: FDA-Public Use
  Company Number: US-JNJFOC-A-NJ2020-208492

PATIENT
  Age: 78 Year
  Sex: Male
  Weight: 83.9 kg

DRUGS (2)
  1. TADALAFIL. [Concomitant]
     Active Substance: TADALAFIL
  2. OPSUMIT [Suspect]
     Active Substance: MACITENTAN
     Indication: PULMONARY ARTERIAL HYPERTENSION
     Dosage: 10 MG, QD
     Route: 048

REACTIONS (6)
  - Dyspnoea [Unknown]
  - Decreased appetite [Unknown]
  - Condition aggravated [Unknown]
  - Oedema [Unknown]
  - Peripheral swelling [Unknown]
  - Swelling [Unknown]
